FAERS Safety Report 7400154-9 (Version None)
Quarter: 2011Q2

REPORT INFORMATION
  Report Type: 
  Country: None (occurrence: None)
  Receive Date: 20110407
  Receipt Date: 20110329
  Transmission Date: 20111010
  Serious: Yes (Hospitalization)
  Sender: FDA-Public Use
  Company Number: FR-ASTRAZENECA-2011SE18270

PATIENT
  Age: 77 Year
  Sex: Male

DRUGS (8)
  1. ATACAND [Suspect]
     Route: 048
     Dates: end: 20101218
  2. AMBROXOL [Concomitant]
  3. MULTAQ [Interacting]
     Route: 065
  4. ANDROCUR [Interacting]
     Route: 065
  5. ZOLADEX [Concomitant]
  6. PREVISCAN [Concomitant]
  7. DITROPAN [Concomitant]
  8. TAHOR [Interacting]
     Route: 065

REACTIONS (4)
  - HEPATIC ENCEPHALOPATHY [None]
  - RENAL FAILURE [None]
  - CHOLESTASIS [None]
  - CYTOLYTIC HEPATITIS [None]
